FAERS Safety Report 26113530 (Version 1)
Quarter: 2025Q4

REPORT INFORMATION
  Report Type: Spontaneous
  Country: US (occurrence: US)
  Receive Date: 20251202
  Receipt Date: 20251202
  Transmission Date: 20260117
  Serious: No
  Sender: Haleon PLC
  Company Number: US-HALEON-2276704

PATIENT
  Age: 82 Year
  Sex: Female

DRUGS (1)
  1. ADVIL PM (DIPHENHYDRAMINE CITRATE\IBUPROFEN) [Suspect]
     Active Substance: DIPHENHYDRAMINE CITRATE\IBUPROFEN
     Indication: Insomnia
     Dosage: 2 - CAPLETS (CPL)
     Dates: start: 20251124, end: 20251125

REACTIONS (5)
  - Pruritus [Recovering/Resolving]
  - Rash [Recovering/Resolving]
  - Drug ineffective for unapproved indication [Unknown]
  - Restlessness [Recovering/Resolving]
  - Product use in unapproved indication [Unknown]
